FAERS Safety Report 9522589 (Version 1)
Quarter: 2013Q1

REPORT INFORMATION
  Report Type: Spontaneous
  Country: US (occurrence: None)
  Receive Date: 20130305
  Receipt Date: 20130305
  Transmission Date: 20140127
  Serious: Yes (Hospitalization, Other)
  Sender: FDA-Public Use
  Company Number: 163-21880-12010935

PATIENT
  Age: 61 Year
  Sex: Male
  Weight: 78.93 kg

DRUGS (3)
  1. REVLIMID (LENALIDOMIDE) (25 MILLIGRAM, CAPSULES) [Suspect]
     Indication: PLASMA CELL MYELOMA
     Dosage: 25 MG, D-1 TO D-21, PO
     Route: 048
     Dates: start: 201111
  2. VELCADE (BORTEZOMI-B) (UNKNOWN) [Concomitant]
  3. DEXAMETHASONE (DEXAMETHASONE) (UNKNOWN) [Concomitant]

REACTIONS (5)
  - Atrial fibrillation [None]
  - Hypotension [None]
  - Lacrimal disorder [None]
  - Chills [None]
  - Neuropathy peripheral [None]
